FAERS Safety Report 18217129 (Version 1)
Quarter: 2020Q3

REPORT INFORMATION
  Report Type: Spontaneous
  Country: US (occurrence: US)
  Receive Date: 20200831
  Receipt Date: 20200831
  Transmission Date: 20201103
  Serious: Yes (Hospitalization)
  Sender: FDA-Public Use
  Company Number: None

PATIENT
  Age: 72 Year
  Sex: Male

DRUGS (2)
  1. OXALIPLATIN (OXALIPLATIN 100MG/VIL (PF) INJ) [Suspect]
     Active Substance: OXALIPLATIN
     Indication: CARDIAC FAILURE CONGESTIVE
     Dates: start: 20200707, end: 20200707
  2. OXALIPLATIN (OXALIPLATIN 100MG/VIL (PF) INJ) [Suspect]
     Active Substance: OXALIPLATIN
     Indication: ACUTE RESPIRATORY FAILURE
     Dates: start: 20200707, end: 20200707

REACTIONS (4)
  - Acute respiratory failure [None]
  - Cardiac failure [None]
  - Pulmonary oedema [None]
  - Electrocardiogram QT prolonged [None]

NARRATIVE: CASE EVENT DATE: 20200706
